FAERS Safety Report 14315250 (Version 2)
Quarter: 2018Q3

REPORT INFORMATION
  Report Type: Spontaneous
  Country: GB (occurrence: GB)
  Receive Date: 20171221
  Receipt Date: 20180720
  Transmission Date: 20181010
  Serious: Yes (Disabling, Other)
  Sender: FDA-Public Use
  Company Number: GB-TEVA-2017-GB-833852

PATIENT
  Age: 63 Year
  Sex: Male
  Weight: 65.31 kg

DRUGS (1)
  1. IBUPROFEN. [Suspect]
     Active Substance: IBUPROFEN
     Indication: NEURALGIA
     Dosage: 8 DOSAGE FORMS DAILY;
     Route: 048
     Dates: start: 20130221, end: 20160717

REACTIONS (5)
  - Nausea [Unknown]
  - Abdominal pain [Unknown]
  - Malaise [Unknown]
  - Gastritis [Not Recovered/Not Resolved]
  - Hiatus hernia [Not Recovered/Not Resolved]

NARRATIVE: CASE EVENT DATE: 20140810
